FAERS Safety Report 7961547-4 (Version None)
Quarter: 2011Q4

REPORT INFORMATION
  Report Type: 
  Country: None (occurrence: None)
  Receive Date: 20111202
  Receipt Date: 20111118
  Transmission Date: 20120403
  Serious: Yes (Hospitalization)
  Sender: FDA-Public Use
  Company Number: DSJ-2011-25121

PATIENT
  Age: 62 Year
  Sex: Male

DRUGS (3)
  1. BENICAR HCT [Suspect]
     Indication: HYPERTENSION
     Dosage: 20/12.5 MG (1 IN 1 D),PER ORAL
     Route: 048
     Dates: start: 20110601
  2. RABEPRAZOEL (RABEPRAZOLE (RABEPRAZOLE) [Concomitant]
  3. ALPRAZOLAM [Concomitant]

REACTIONS (2)
  - HYPOTENSION [None]
  - NEOPLASM [None]
